FAERS Safety Report 8244599-6 (Version None)
Quarter: 2012Q1

REPORT INFORMATION
  Report Type: 
  Country: None (occurrence: None)
  Receive Date: 20120329
  Receipt Date: 20120323
  Transmission Date: 20120608
  Serious: Yes (Other)
  Sender: FDA-Public Use
  Company Number: US-PFIZER INC-2012055676

PATIENT
  Sex: Female
  Weight: 58.503 kg

DRUGS (4)
  1. LORAZEPAM [Concomitant]
     Indication: ANXIETY
     Dosage: 0.5 MG, 3X/DAY
     Dates: start: 20090101
  2. LORAZEPAM [Concomitant]
     Dosage: 0.5 TO 1 MG Q8H PRN
  3. XALKORI [Suspect]
     Indication: LUNG NEOPLASM MALIGNANT
     Dosage: 250 MG, 2X/DAY
     Route: 048
     Dates: start: 20120222, end: 20120226
  4. PROZAC [Concomitant]
     Indication: DEPRESSION
     Dosage: 20 MG, 1X/DAY
     Dates: start: 20090101

REACTIONS (8)
  - LOSS OF CONSCIOUSNESS [None]
  - NAUSEA [None]
  - DECREASED APPETITE [None]
  - ARRHYTHMIA [None]
  - SYNCOPE [None]
  - BLOOD PRESSURE DECREASED [None]
  - ATRIOVENTRICULAR BLOCK FIRST DEGREE [None]
  - VOMITING [None]
